FAERS Safety Report 15822242 (Version 3)
Quarter: 2019Q3

REPORT INFORMATION
  Report Type: Spontaneous
  Country: US (occurrence: US)
  Receive Date: 20190114
  Receipt Date: 20190716
  Transmission Date: 20191004
  Serious: No
  Sender: FDA-Public Use
  Company Number: US-VANDA PHARMACEUTICALS, INC-2018TASUS002768

PATIENT
  Sex: Female

DRUGS (3)
  1. HETLIOZ [Suspect]
     Active Substance: TASIMELTEON
     Indication: CIRCADIAN RHYTHM SLEEP DISORDER
     Dosage: 20 MG, QD
     Route: 048
     Dates: start: 20160921
  2. PREDNISONE. [Concomitant]
     Active Substance: PREDNISONE
     Indication: PRODUCT USED FOR UNKNOWN INDICATION
  3. ATROPINE. [Concomitant]
     Active Substance: ATROPINE
     Indication: PRODUCT USED FOR UNKNOWN INDICATION

REACTIONS (2)
  - Headache [Unknown]
  - Drug ineffective [Unknown]
